FAERS Safety Report 13334527 (Version 1)
Quarter: 2017Q1

REPORT INFORMATION
  Report Type: Spontaneous
  Country: ES (occurrence: ES)
  Receive Date: 20170314
  Receipt Date: 20170314
  Transmission Date: 20170428
  Serious: Yes (Hospitalization)
  Sender: FDA-Public Use
  Company Number: ES-JNJFOC-20170307154

PATIENT
  Age: 82 Year
  Sex: Male

DRUGS (6)
  1. RIVOTRIL [Suspect]
     Active Substance: CLONAZEPAM
     Indication: DEMENTIA
     Route: 048
     Dates: start: 2016
  2. QUETIAPINE. [Suspect]
     Active Substance: QUETIAPINE
     Indication: DEMENTIA
     Dosage: STRENGTH 100 MG HALF TABLET IN AFTERNOON AND 1 TABLET IN EVENING
     Route: 048
     Dates: start: 2016
  3. ALPRAZOLAM. [Suspect]
     Active Substance: ALPRAZOLAM
     Indication: DEMENTIA
     Route: 048
     Dates: start: 2016, end: 201702
  4. TRAZODONE HYDROCHLORIDE. [Suspect]
     Active Substance: TRAZODONE HYDROCHLORIDE
     Indication: DEMENTIA
     Route: 048
  5. RISPERDAL [Suspect]
     Active Substance: RISPERIDONE
     Indication: DEMENTIA
     Route: 048
     Dates: start: 2016
  6. TRAZODONE HYDROCHLORIDE. [Suspect]
     Active Substance: TRAZODONE HYDROCHLORIDE
     Indication: DEMENTIA
     Dosage: STRENGTH 100 MG HALF TABLET IN AFTERNOON AND 1 TABLET IN EVENING
     Route: 048
     Dates: start: 2016

REACTIONS (4)
  - Parkinsonism [Unknown]
  - Sedation [Unknown]
  - Medication error [Unknown]
  - Pyrexia [Recovering/Resolving]

NARRATIVE: CASE EVENT DATE: 201606
